FAERS Safety Report 8416063-2 (Version None)
Quarter: 2012Q2

REPORT INFORMATION
  Report Type: 
  Country: None (occurrence: None)
  Receive Date: 20120606
  Receipt Date: 20120524
  Transmission Date: 20120825
  Serious: No
  Sender: FDA-Public Use
  Company Number: US-ASTRAZENECA-2012SE34088

PATIENT
  Age: 42 Year
  Sex: Female

DRUGS (12)
  1. SEROQUEL [Concomitant]
  2. CARBAMAZEPINE [Concomitant]
  3. PROAIR HFA [Concomitant]
  4. FLURBIPROFEN [Concomitant]
  5. AMITRIP [Concomitant]
  6. METOLAZONE [Concomitant]
  7. PERPHEN [Concomitant]
  8. NEXIUM [Suspect]
     Route: 048
  9. FLUOXETINE [Concomitant]
  10. LISINOPRIL [Concomitant]
  11. ENABLEX [Concomitant]
  12. KLOR-CON [Concomitant]

REACTIONS (3)
  - INTENTIONAL DRUG MISUSE [None]
  - GASTROOESOPHAGEAL REFLUX DISEASE [None]
  - FEELING ABNORMAL [None]
